FAERS Safety Report 10036579 (Version 1)
Quarter: 2014Q1

REPORT INFORMATION
  Report Type: Spontaneous
  Country: DE (occurrence: DE)
  Receive Date: 20140326
  Receipt Date: 20140326
  Transmission Date: 20141002
  Serious: Yes (Hospitalization)
  Sender: FDA-Public Use
  Company Number: DE-BIOGENIDEC-2014BI026437

PATIENT
  Sex: Female
  Weight: 100 kg

DRUGS (3)
  1. AVONEX [Suspect]
     Indication: MULTIPLE SCLEROSIS
     Route: 030
     Dates: start: 20120206
  2. CITALOPRAM [Concomitant]
     Indication: DEPRESSION
  3. IBUPROFEN [Concomitant]
     Indication: MULTIPLE SCLEROSIS

REACTIONS (1)
  - Breast cancer [Not Recovered/Not Resolved]
